FAERS Safety Report 6128552-4 (Version None)
Quarter: 2009Q1

REPORT INFORMATION
  Report Type: 
  Country: None (occurrence: None)
  Receive Date: 20090323
  Receipt Date: 20090203
  Transmission Date: 20090719
  Serious: No
  Sender: FDA-Public Use
  Company Number: US-ELI_LILLY_AND_COMPANY-US200902000846

PATIENT
  Sex: Female

DRUGS (11)
  1. CYMBALTA [Suspect]
     Indication: DEPRESSION
     Dosage: 90 MG, UNK
     Dates: start: 20080101
  2. CYMBALTA [Suspect]
     Dosage: 1 D/F, UNK
     Dates: end: 20081101
  3. VITAMIN B6 [Concomitant]
     Dosage: 25 MG, UNK
  4. FOLIC ACID [Concomitant]
     Dosage: 400 UG, DAILY (1/D)
  5. DIGESTIVES, INCL ENZYMES [Concomitant]
     Dosage: 1 D/F, DAILY (1/D)
  6. CARTILAGE [Concomitant]
  7. BENADRYL [Concomitant]
     Dosage: 1 D/F, AS NEEDED
  8. CALCIUM                                 /N/A/ [Concomitant]
  9. VITAMIN D [Concomitant]
  10. FOSAMAX [Concomitant]
     Dosage: 25 MG, WEEKLY (1/W)
  11. VITAMIN B12                        /00056201/ [Concomitant]

REACTIONS (3)
  - ALANINE AMINOTRANSFERASE INCREASED [None]
  - ASPARTATE AMINOTRANSFERASE INCREASED [None]
  - ONYCHOMYCOSIS [None]
